FAERS Safety Report 10083727 (Version 1)
Quarter: 2014Q2

REPORT INFORMATION
  Report Type: Spontaneous
  Country: US (occurrence: US)
  Receive Date: 20140417
  Receipt Date: 20140417
  Transmission Date: 20141212
  Serious: Yes (Other)
  Sender: FDA-Public Use
  Company Number: US-BAYER-2014-054677

PATIENT
  Age: 47 Year
  Sex: Female
  Weight: 41.72 kg

DRUGS (3)
  1. ALEVE TABLET [Suspect]
     Indication: ANALGESIC THERAPY
     Dosage: 1 DF, ONCE
     Route: 048
     Dates: start: 20140404, end: 20140404
  2. ALEVE GELCAPS [Suspect]
     Indication: ANALGESIC THERAPY
     Dosage: 1 DF, ONCE
     Route: 048
     Dates: start: 2012, end: 2012
  3. TYLENOL [PARACETAMOL] [Concomitant]

REACTIONS (6)
  - Dyspnoea [Recovered/Resolved]
  - Rash papular [Recovered/Resolved]
  - Swelling face [Recovered/Resolved]
  - Dyspnoea [Recovered/Resolved]
  - Rash papular [Recovered/Resolved]
  - Swelling face [Recovered/Resolved]
